FAERS Safety Report 5722358-3 (Version None)
Quarter: 2008Q2

REPORT INFORMATION
  Report Type: 
  Country: None (occurrence: None)
  Receive Date: 20080429
  Receipt Date: 20071210
  Transmission Date: 20081010
  Serious: No
  Sender: FDA-Public Use
  Company Number: US-ASTRAZENECA-2007UW28116

PATIENT
  Age: 84 Year
  Sex: Male
  Weight: 68 kg

DRUGS (11)
  1. NEXIUM [Suspect]
     Indication: GASTROOESOPHAGEAL REFLUX DISEASE
     Route: 048
  2. CENTRUM [Concomitant]
  3. MULTIVITAMIN [Concomitant]
  4. DOCUSATE [Concomitant]
  5. ATENOLOL [Concomitant]
     Route: 048
  6. HYDROCHLOROTHIAZIDE [Concomitant]
  7. LISINOPRIL [Concomitant]
     Route: 048
  8. ASPIRIN [Concomitant]
  9. ZOCOR [Concomitant]
  10. AVANDIA [Concomitant]
  11. GLIPIZIDE [Concomitant]

REACTIONS (2)
  - DRUG INEFFECTIVE [None]
  - DYSGEUSIA [None]
